FAERS Safety Report 6395956-4 (Version None)
Quarter: 2009Q4

REPORT INFORMATION
  Report Type: 
  Country: None (occurrence: None)
  Receive Date: 20091009
  Receipt Date: 20090929
  Transmission Date: 20100525
  Serious: Yes (Other)
  Sender: FDA-Public Use
  Company Number: PHHY2009JP42106

PATIENT
  Sex: Male

DRUGS (2)
  1. NEORAL [Suspect]
     Indication: APLASIA PURE RED CELL
     Dosage: 6 MG/KG DAILY
     Route: 048
  2. NEORAL [Suspect]
     Dosage: 4 MG/KG DAILY
     Route: 048

REACTIONS (2)
  - NAUSEA [None]
  - PANCYTOPENIA [None]
